FAERS Safety Report 9122397 (Version 2)
Quarter: 2013Q1

REPORT INFORMATION
  Report Type: Spontaneous
  Country: US (occurrence: None)
  Receive Date: 20130130
  Receipt Date: 20130130
  Transmission Date: 20140127
  Serious: Yes (Death)
  Sender: FDA-Public Use
  Company Number: B0859748A

PATIENT
  Age: 60 Year
  Sex: Female

DRUGS (4)
  1. DIAZEPAM (FORMULATION UNKNOWN) (GENERIC) (DIAZEPAM) [Suspect]
     Route: 048
  2. PAROXETINE HYDROCHLORIDE (FORMULATION UNKNOWN) (GENERIC) (PAROXETINE HYDROCHLORIDE) [Suspect]
     Route: 048
  3. METAXALONE (FORMULATION UNKNOWN) (METAXALONE) [Suspect]
  4. GABAPENTIN (FORMULATION UNKNOWN) (GABAPENTIN) [Suspect]

REACTIONS (2)
  - Completed suicide [None]
  - Cardio-respiratory arrest [None]
